FAERS Safety Report 13656548 (Version 2)
Quarter: 2017Q2

REPORT INFORMATION
  Report Type: Spontaneous
  Country: DE (occurrence: DE)
  Receive Date: 20170615
  Receipt Date: 20170616
  Transmission Date: 20170830
  Serious: Yes (Death)
  Sender: FDA-Public Use
  Company Number: DE-PFIZER INC-2017257210

PATIENT
  Age: 53 Year
  Sex: Male
  Weight: 160 kg

DRUGS (1)
  1. DALTEPARIN SODIUM [Suspect]
     Active Substance: DALTEPARIN SODIUM
     Dosage: 18000 IU, VIA INJECTION

REACTIONS (2)
  - Respiratory failure [Fatal]
  - Drug level below therapeutic [Fatal]
